FAERS Safety Report 20940912 (Version 6)
Quarter: 2022Q4

REPORT INFORMATION
  Report Type: Report from Study
  Country: US (occurrence: US)
  Receive Date: 20220609
  Receipt Date: 20221215
  Transmission Date: 20230113
  Serious: Yes (Life-Threatening, Hospitalization, Disabling, Other)
  Sender: FDA-Public Use
  Company Number: US-NOVARTISTESTPH-NVSC2022US132787

PATIENT
  Sex: Female

DRUGS (1)
  1. KESIMPTA [Suspect]
     Active Substance: OFATUMUMAB
     Indication: Multiple sclerosis
     Dosage: UNK
     Route: 058
     Dates: start: 20220607

REACTIONS (7)
  - Cerebrovascular accident [Unknown]
  - Influenza like illness [Recovering/Resolving]
  - Paraesthesia [Recovering/Resolving]
  - Migraine [Recovering/Resolving]
  - Chills [Recovering/Resolving]
  - Feeling of body temperature change [Recovering/Resolving]
  - Dry mouth [Not Recovered/Not Resolved]
